FAERS Safety Report 21322348 (Version 1)
Quarter: 2022Q3

REPORT INFORMATION
  Report Type: Spontaneous
  Country: US (occurrence: None)
  Receive Date: 20220910
  Receipt Date: 20220910
  Transmission Date: 20221027
  Serious: No
  Sender: FDA-Public Use
  Company Number: None

PATIENT
  Sex: Female
  Weight: 53.98 kg

DRUGS (8)
  1. WELIREG [Suspect]
     Active Substance: BELZUTIFAN
     Indication: Brain neoplasm
     Dosage: FREQUENCY : DAILY;?
     Route: 048
  2. CLONIDINE [Concomitant]
     Active Substance: CLONIDINE
  3. CLONAZEPAM [Concomitant]
     Active Substance: CLONAZEPAM
  4. METAMUCIL [Concomitant]
     Active Substance: PLANTAGO SEED
  5. Multivitamins/Minerals [Concomitant]
  6. VITAMIN B COMPLEX [Concomitant]
     Active Substance: CYANOCOBALAMIN\DEXPANTHENOL\NIACINAMIDE\PYRIDOXINE HYDROCHLORIDE\RIBOFLAVIN 5^-PHOSPHATE SODIUM\THIA
  7. ASCORBIC ACID [Concomitant]
     Active Substance: ASCORBIC ACID
  8. VITAMIN D3 [Concomitant]
     Active Substance: CHOLECALCIFEROL

REACTIONS (2)
  - Wrist fracture [None]
  - Therapy interrupted [None]
